FAERS Safety Report 19004672 (Version 1)
Quarter: 2021Q1

REPORT INFORMATION
  Report Type: Spontaneous
  Country: US (occurrence: US)
  Receive Date: 20210312
  Receipt Date: 20210312
  Transmission Date: 20210420
  Serious: Yes (Hospitalization)
  Sender: FDA-Public Use
  Company Number: US-ELI_LILLY_AND_COMPANY-US202103001850

PATIENT
  Age: 73 Year
  Sex: Male

DRUGS (8)
  1. HUMULIN R U?500 [Suspect]
     Active Substance: INSULIN HUMAN
     Dosage: 75 U, TID
     Route: 058
     Dates: start: 202009
  2. HUMULIN R U?500 [Suspect]
     Active Substance: INSULIN HUMAN
     Dosage: 75 U, TID
     Route: 058
     Dates: start: 202009
  3. HUMULIN R U?500 [Suspect]
     Active Substance: INSULIN HUMAN
     Dosage: 75 U, TID
     Route: 058
     Dates: start: 202009
  4. HUMULIN R U?500 [Suspect]
     Active Substance: INSULIN HUMAN
     Indication: TYPE 2 DIABETES MELLITUS
     Dosage: 75 U, TID
     Route: 058
     Dates: start: 202009
  5. HUMULIN R U?500 [Suspect]
     Active Substance: INSULIN HUMAN
     Indication: TYPE 2 DIABETES MELLITUS
     Dosage: 75 U, TID
     Route: 058
     Dates: start: 202009
  6. HUMULIN R U?500 [Suspect]
     Active Substance: INSULIN HUMAN
     Dosage: 75 U, TID
     Route: 058
     Dates: start: 202009
  7. TRULICITY [Suspect]
     Active Substance: DULAGLUTIDE
     Indication: TYPE 2 DIABETES MELLITUS
     Dosage: 1.5 MG, UNKNOWN
     Route: 065
  8. HUMULIN R U?500 [Suspect]
     Active Substance: INSULIN HUMAN
     Indication: TYPE 2 DIABETES MELLITUS
     Dosage: 75 U, TID
     Route: 058
     Dates: start: 202009

REACTIONS (7)
  - Weight decreased [Recovering/Resolving]
  - Hyperhidrosis [Recovering/Resolving]
  - Cold sweat [Recovering/Resolving]
  - Blood glucose decreased [Recovering/Resolving]
  - Appetite disorder [Recovering/Resolving]
  - Cerebral haemorrhage [Recovering/Resolving]
  - Accident [Recovering/Resolving]

NARRATIVE: CASE EVENT DATE: 202102
